FAERS Safety Report 8444634-6 (Version None)
Quarter: 2012Q2

REPORT INFORMATION
  Report Type: 
  Country: None (occurrence: None)
  Receive Date: 20120618
  Receipt Date: 20120612
  Transmission Date: 20120825
  Serious: Yes (Hospitalization)
  Sender: FDA-Public Use
  Company Number: US-PFIZER INC-2012117427

PATIENT
  Sex: Female
  Weight: 27.211 kg

DRUGS (2)
  1. ACETYLSALICYLIC ACID [Concomitant]
     Indication: MEDICAL DEVICE IMPLANTATION
     Dosage: 81 MG, DAILY
     Route: 048
  2. ZYVOX [Suspect]
     Indication: ILL-DEFINED DISORDER
     Dosage: 600 MG, 2X/DAY
     Dates: start: 20120314, end: 20120420

REACTIONS (14)
  - BOWEL MOVEMENT IRREGULARITY [None]
  - PAIN [None]
  - FEELING ABNORMAL [None]
  - ALOPECIA [None]
  - BLOOD POTASSIUM DECREASED [None]
  - VOMITING [None]
  - DRUG INTOLERANCE [None]
  - APHAGIA [None]
  - GASTROINTESTINAL DISORDER [None]
  - GASTRIC DISORDER [None]
  - DIARRHOEA [None]
  - GASTRITIS [None]
  - WEIGHT DECREASED [None]
  - WEIGHT INCREASED [None]
